FAERS Safety Report 5777479-6 (Version None)
Quarter: 2008Q2

REPORT INFORMATION
  Report Type: 
  Country: None (occurrence: None)
  Receive Date: 20080618
  Receipt Date: 20080611
  Transmission Date: 20081010
  Serious: Yes (Other)
  Sender: FDA-Public Use
  Company Number: US-BAYER-200821401NA

PATIENT
  Age: 59 Year
  Sex: Female

DRUGS (1)
  1. MAGNEVIST [Suspect]
     Indication: NUCLEAR MAGNETIC RESONANCE IMAGING
     Dosage: TOTAL DAILY DOSE: 15 ML
     Route: 042
     Dates: start: 20080425, end: 20080425

REACTIONS (6)
  - DRY MOUTH [None]
  - ERYTHEMA [None]
  - FLUSHING [None]
  - HEAD DISCOMFORT [None]
  - OEDEMA MOUTH [None]
  - SWOLLEN TONGUE [None]
